FAERS Safety Report 8820129 (Version 3)
Quarter: 2012Q4

REPORT INFORMATION
  Report Type: 
  Country: HN (occurrence: HN)
  Receive Date: 20121001
  Receipt Date: 20121024
  Transmission Date: 20130627
  Serious: Yes (Hospitalization)
  Sender: FDA-Public Use
  Company Number: HN-ROCHE-1137538

PATIENT
  Sex: Female

DRUGS (2)
  1. BONVIVA [Suspect]
     Indication: OSTEOPOROSIS
     Route: 048
     Dates: start: 20100825, end: 201203
  2. ATORVASTATIN [Concomitant]

REACTIONS (2)
  - Constipation [Recovered/Resolved]
  - Fistula [Recovered/Resolved]
